FAERS Safety Report 5479255-0 (Version None)
Quarter: 2007Q4

REPORT INFORMATION
  Report Type: 
  Country: None (occurrence: None)
  Receive Date: 20071008
  Receipt Date: 20071001
  Transmission Date: 20080405
  Serious: Yes (Other)
  Sender: FDA-Public Use
  Company Number: PHBS2007JP16385

PATIENT
  Age: 44 Year
  Sex: Female

DRUGS (3)
  1. ZOMETA [Suspect]
     Indication: METASTASES TO BONE
     Route: 042
  2. AREDIA [Suspect]
     Indication: METASTASES TO BONE
     Route: 065
  3. CAPECITABINE [Concomitant]
     Dosage: UNK, UNK
     Route: 048
     Dates: start: 20070801

REACTIONS (4)
  - DENTAL ALVEOLAR ANOMALY [None]
  - FIBROUS DYSPLASIA OF BONE [None]
  - ORAL DISCOMFORT [None]
  - TOOTHACHE [None]
